FAERS Safety Report 5332173-0 (Version None)
Quarter: 2007Q2

REPORT INFORMATION
  Report Type: 
  Country: None (occurrence: None)
  Receive Date: 20070523
  Receipt Date: 20070516
  Transmission Date: 20071010
  Serious: Yes (Hospitalization, Disabling, Other)
  Sender: FDA-Public Use
  Company Number: US-PURDUE-USA_2007_0027356

PATIENT
  Sex: Female

DRUGS (2)
  1. MS CONTIN [Suspect]
     Indication: SYSTEMIC LUPUS ERYTHEMATOSUS
     Dosage: 60 MG, UNK
  2. MS CONTIN [Suspect]
     Dosage: 100 MG, BID PRN

REACTIONS (35)
  - ABSCESS LIMB [None]
  - ADRENAL INSUFFICIENCY [None]
  - ALOPECIA [None]
  - CONNECTIVE TISSUE DISORDER [None]
  - CONSTIPATION [None]
  - CUTANEOUS LUPUS ERYTHEMATOSUS [None]
  - DEHYDRATION [None]
  - DYSPNOEA [None]
  - IMMUNE SYSTEM DISORDER [None]
  - IMPAIRED WORK ABILITY [None]
  - JOINT DISLOCATION [None]
  - LIGAMENT INJURY [None]
  - LUNG DISORDER [None]
  - LYMPHADENOPATHY [None]
  - LYMPHOMA [None]
  - MEDICATION RESIDUE [None]
  - MEMORY IMPAIRMENT [None]
  - MYOCARDIAL INFARCTION [None]
  - NASAL OEDEMA [None]
  - OSTEITIS [None]
  - OSTEOMYELITIS CHRONIC [None]
  - PAIN [None]
  - PAIN IN EXTREMITY [None]
  - PELVIC MASS [None]
  - PHARMACEUTICAL PRODUCT COMPLAINT [None]
  - PHARYNGEAL OEDEMA [None]
  - PRURITUS [None]
  - ROAD TRAFFIC ACCIDENT [None]
  - SCLERODERMA [None]
  - SYNCOPE VASOVAGAL [None]
  - THERAPEUTIC AGENT TOXICITY [None]
  - THROAT IRRITATION [None]
  - URTICARIA [None]
  - UTERINE CANCER [None]
  - VERTEBRAL INJURY [None]
